FAERS Safety Report 16056014 (Version 2)
Quarter: 2019Q1

REPORT INFORMATION
  Report Type: Spontaneous
  Country: US (occurrence: US)
  Receive Date: 20190311
  Receipt Date: 20190312
  Transmission Date: 20190418
  Serious: Yes (Other)
  Sender: FDA-Public Use
  Company Number: US-GLAXOSMITHKLINE-US2019GSK042650

PATIENT
  Sex: Female

DRUGS (3)
  1. PREVACID [Suspect]
     Active Substance: LANSOPRAZOLE
     Indication: PRODUCT USED FOR UNKNOWN INDICATION
     Dosage: UNK
     Route: 065
  2. OMEPRAZOLE. [Suspect]
     Active Substance: OMEPRAZOLE
     Dosage: 40 MG, QD
     Route: 048
  3. OMEPRAZOLE. [Suspect]
     Active Substance: OMEPRAZOLE
     Indication: PRODUCT USED FOR UNKNOWN INDICATION
     Dosage: 20 MG, QD
     Route: 048

REACTIONS (12)
  - Renal injury [Unknown]
  - Hypertensive nephropathy [Unknown]
  - Nephrosclerosis [Unknown]
  - Renal tubular necrosis [Unknown]
  - Proteinuria [Unknown]
  - Renal cyst [Unknown]
  - Renal failure [Unknown]
  - End stage renal disease [Unknown]
  - Haematuria [Unknown]
  - Chronic kidney disease [Unknown]
  - IgA nephropathy [Unknown]
  - Glomerulonephritis chronic [Unknown]
